FAERS Safety Report 6567755-1 (Version None)
Quarter: 2010Q1

REPORT INFORMATION
  Report Type: 
  Country: None (occurrence: None)
  Receive Date: 20100203
  Receipt Date: 20100126
  Transmission Date: 20100710
  Serious: Yes (Hospitalization, Other)
  Sender: FDA-Public Use
  Company Number: US-PFIZER INC-2009288869

PATIENT
  Sex: Female
  Weight: 82.993 kg

DRUGS (10)
  1. SUTENT [Suspect]
     Indication: METASTATIC RENAL CELL CARCINOMA
     Dosage: 50 MG, 1X/DAY, CYCLE 4/2
     Route: 048
     Dates: start: 20091001, end: 20091208
  2. NEXIUM [Concomitant]
     Indication: NAUSEA
     Dosage: UNK
  3. TOPROL-XL [Concomitant]
     Indication: HYPERTENSION
     Dosage: 100 MG, UNK
  4. PLAVIX [Concomitant]
     Dosage: 75 MG, UNK
  5. LIPITOR [Concomitant]
     Dosage: 80 MG, UNK
  6. ACCUPRIL [Concomitant]
     Indication: HYPERTENSION
     Dosage: UNK
  7. ACETYLSALICYLIC ACID [Concomitant]
     Dosage: 325 MG, UNK
  8. POTASSIUM [Concomitant]
     Indication: MEDICAL DIET
     Dosage: UNK
  9. FISH OIL [Concomitant]
     Dosage: 1000 MG, 1X/DAY
  10. PERCOCET [Concomitant]

REACTIONS (2)
  - AGEUSIA [None]
  - PLEURAL EFFUSION [None]
